FAERS Safety Report 23831034 (Version 7)
Quarter: 2024Q3

REPORT INFORMATION
  Report Type: Spontaneous
  Country: IN (occurrence: IN)
  Receive Date: 20240508
  Receipt Date: 20240909
  Transmission Date: 20241016
  Serious: Yes (Other)
  Sender: PFIZER
  Company Number: IN-PFIZER INC-PV202400058573

PATIENT
  Age: 41 Year
  Sex: Female

DRUGS (2)
  1. LORLATINIB [Suspect]
     Active Substance: LORLATINIB
     Indication: Non-small cell lung cancer stage IV
     Dosage: 100 MG, 1X/DAY
     Route: 048
     Dates: start: 202402
  2. LORLATINIB [Suspect]
     Active Substance: LORLATINIB
     Dosage: OD
     Route: 048
     Dates: start: 20240301

REACTIONS (20)
  - Low density lipoprotein increased [Recovering/Resolving]
  - Upper respiratory tract infection [Recovered/Resolved]
  - Alopecia [Recovering/Resolving]
  - Eye pain [Recovered/Resolved]
  - Oropharyngeal pain [Recovered/Resolved]
  - Constipation [Recovered/Resolved]
  - Blood glucose increased [Unknown]
  - Blood triglycerides increased [Recovered/Resolved]
  - White blood cell count increased [Not Recovered/Not Resolved]
  - Platelet count increased [Recovered/Resolved]
  - Prothrombin time prolonged [Unknown]
  - Blood cholesterol increased [Recovering/Resolving]
  - Total cholesterol/HDL ratio increased [Recovered/Resolved]
  - Haemoglobin decreased [Not Recovered/Not Resolved]
  - Mean cell haemoglobin decreased [Unknown]
  - Mean cell haemoglobin concentration decreased [Unknown]
  - Neutrophil count increased [Unknown]
  - Lymphocyte percentage decreased [Unknown]
  - Hepatic steatosis [Unknown]
  - Hepatomegaly [Unknown]

NARRATIVE: CASE EVENT DATE: 20240301
